FAERS Safety Report 5195578-7 (Version None)
Quarter: 2007Q1

REPORT INFORMATION
  Report Type: 
  Country: None (occurrence: None)
  Receive Date: 20070102
  Receipt Date: 20061222
  Transmission Date: 20070707
  Serious: Yes (Death)
  Sender: FDA-Public Use
  Company Number: JP-BRISTOL-MYERS SQUIBB COMPANY-13624606

PATIENT
  Age: 82 Year
  Sex: Male

DRUGS (3)
  1. TAXOL [Suspect]
     Indication: PANCREATIC CARCINOMA
     Route: 041
  2. RANDA [Concomitant]
  3. FLUOROURACIL [Concomitant]

REACTIONS (1)
  - HAEMATEMESIS [None]
